FAERS Safety Report 5152381-1 (Version None)
Quarter: 2006Q4

REPORT INFORMATION
  Report Type: 
  Country: None (occurrence: None)
  Receive Date: 20061116
  Receipt Date: 20061108
  Transmission Date: 20070319
  Serious: Yes (Other)
  Sender: FDA-Public Use
  Company Number: FR-BRISTOL-MYERS SQUIBB COMPANY-13571013

PATIENT

DRUGS (1)
  1. TRIAMCINOLONE [Suspect]
     Route: 031

REACTIONS (3)
  - ENDOPHTHALMITIS [None]
  - HYPERTONIA [None]
  - MACULAR HOLE [None]
